FAERS Safety Report 9826055 (Version 3)
Quarter: 2014Q2

REPORT INFORMATION
  Report Type: Report from Study
  Country: DE (occurrence: DE)
  Receive Date: 20140117
  Receipt Date: 20140429
  Transmission Date: 20141212
  Serious: Yes (Hospitalization)
  Sender: FDA-Public Use
  Company Number: DE-ASTELLAS-2013US011784

PATIENT
  Age: 15 Year
  Sex: Female

DRUGS (5)
  1. TACROLIMUS [Suspect]
     Indication: DERMATITIS ATOPIC
     Dosage: 0.1 %, UNKNOWN FREQ.
     Route: 061
     Dates: start: 20070112
  2. ELIDEL [Concomitant]
     Indication: DERMATITIS ATOPIC
     Dosage: UNK UNK, UNKNOWN/D
     Route: 065
     Dates: start: 20070112
  3. ADVANTAN [Concomitant]
     Indication: DERMATITIS ATOPIC
     Dosage: UNK UNK, UNKNOWN/D
     Route: 065
  4. FORMOTOP [Concomitant]
     Indication: DERMATITIS ATOPIC
     Dosage: UNK UNK, UNKNOWN/D
     Route: 065
  5. ETRAVAN [Concomitant]
     Indication: DERMATITIS ATOPIC
     Dosage: 0.1 %, UNKNOWN FREQ.
     Route: 065

REACTIONS (3)
  - Asthma [Unknown]
  - Asthma [Unknown]
  - Off label use [Unknown]
